FAERS Safety Report 19264524 (Version 2)
Quarter: 2021Q2

REPORT INFORMATION
  Report Type: Spontaneous
  Country: KW (occurrence: KW)
  Receive Date: 20210517
  Receipt Date: 20210526
  Transmission Date: 20210717
  Serious: Yes (Other)
  Sender: FDA-Public Use
  Company Number: KW-LUPIN PHARMACEUTICALS INC.-2021-04078

PATIENT
  Age: 25 Year
  Sex: Male

DRUGS (3)
  1. ESCITALOPRAM [Suspect]
     Active Substance: ESCITALOPRAM OXALATE
     Dosage: 30 MILLIGRAM, QD
     Route: 065
  2. ESCITALOPRAM [Suspect]
     Active Substance: ESCITALOPRAM OXALATE
     Indication: OBSESSIVE-COMPULSIVE DISORDER
     Dosage: 20 MILLIGRAM, QD (OVER 4 WEEK DURATION; LATER, DOSE INCREASED TO 30 MG/DAY)
     Route: 065
  3. ESCITALOPRAM [Suspect]
     Active Substance: ESCITALOPRAM OXALATE
     Dosage: 20 MILLIGRAM, QD
     Route: 065

REACTIONS (1)
  - Ventricular extrasystoles [Recovered/Resolved]
